FAERS Safety Report 16108647 (Version 1)
Quarter: 2019Q1

REPORT INFORMATION
  Report Type: Spontaneous
  Country: FR (occurrence: FR)
  Receive Date: 20190323
  Receipt Date: 20190323
  Transmission Date: 20190418
  Serious: Yes (Other)
  Sender: FDA-Public Use
  Company Number: FR-IPSEN BIOPHARMACEUTICALS, INC.-2019-04334

PATIENT
  Age: 39 Year
  Sex: Female

DRUGS (1)
  1. DYSPORT [Suspect]
     Active Substance: ABOBOTULINUMTOXINA
     Indication: DYSTONIA
     Dosage: 600 IU
     Route: 030
     Dates: start: 20180213, end: 20180213

REACTIONS (1)
  - Neuralgic amyotrophy [Recovered/Resolved]

NARRATIVE: CASE EVENT DATE: 20180226
